FAERS Safety Report 6113736-1 (Version None)
Quarter: 2009Q1

REPORT INFORMATION
  Report Type: 
  Country: None (occurrence: None)
  Receive Date: 20090312
  Receipt Date: 20090309
  Transmission Date: 20090719
  Serious: Yes (Life-Threatening)
  Sender: FDA-Public Use
  Company Number: PHEH2009US02436

PATIENT
  Sex: Female

DRUGS (1)
  1. ENABLEX [Suspect]
     Dosage: UNK, UNK

REACTIONS (9)
  - CHOKING [None]
  - CONSTIPATION [None]
  - DRUG INEFFECTIVE [None]
  - DRY EYE [None]
  - DRY THROAT [None]
  - EYELID MARGIN CRUSTING [None]
  - INSOMNIA [None]
  - MALAISE [None]
  - NASAL DRYNESS [None]
